FAERS Safety Report 7705572-7 (Version None)
Quarter: 2011Q3

REPORT INFORMATION
  Report Type: 
  Country: None (occurrence: None)
  Receive Date: 20110823
  Receipt Date: 20110823
  Transmission Date: 20111222
  Serious: Yes (Hospitalization)
  Sender: FDA-Public Use
  Company Number: None

PATIENT
  Age: 86 Year
  Sex: Male
  Weight: 78 kg

DRUGS (1)
  1. WARFARIN SODIUM [Suspect]
     Indication: ATRIAL FIBRILLATION
     Dates: start: 19960704

REACTIONS (4)
  - INTERNATIONAL NORMALISED RATIO ABNORMAL [None]
  - DIARRHOEA [None]
  - ASTHENIA [None]
  - DEHYDRATION [None]
